FAERS Safety Report 13438965 (Version 1)
Quarter: 2017Q2

REPORT INFORMATION
  Report Type: Spontaneous
  Country: US (occurrence: US)
  Receive Date: 20170412
  Receipt Date: 20170412
  Transmission Date: 20170830
  Serious: Yes (Death, Hospitalization, Other)
  Sender: FDA-Public Use
  Company Number: US-TAKEDA-2017TUS007188

PATIENT
  Sex: Male
  Weight: 63.49 kg

DRUGS (9)
  1. SYMBICORT [Concomitant]
     Active Substance: BUDESONIDE\FORMOTEROL FUMARATE DIHYDRATE
     Dosage: UNK UNK, BID
     Route: 055
     Dates: start: 20161221
  2. FLONASE [Concomitant]
     Active Substance: FLUTICASONE PROPIONATE
     Dosage: 16 G, QD
     Route: 045
     Dates: start: 20161221
  3. ENTOCORT [Concomitant]
     Active Substance: BUDESONIDE
     Dosage: 9 MG, QD
     Route: 048
     Dates: start: 20161221
  4. ZYRTEC [Concomitant]
     Active Substance: CETIRIZINE HYDROCHLORIDE
     Dosage: 10 MG, QD
     Route: 048
     Dates: start: 20160326
  5. ENTYVIO [Suspect]
     Active Substance: VEDOLIZUMAB
     Indication: CROHN^S DISEASE
     Dosage: 300 MG, UNK
     Route: 042
     Dates: start: 201609
  6. CHOLECALCIFEROL [Concomitant]
     Active Substance: CHOLECALCIFEROL
     Dosage: 5000 UNITS, UNK
     Route: 048
     Dates: start: 20161221
  7. LOMOTIL [Concomitant]
     Active Substance: ATROPINE SULFATE\DIPHENOXYLATE HYDROCHLORIDE
     Dosage: UNK, QD
     Route: 048
     Dates: start: 20161221
  8. COUMADIN [Concomitant]
     Active Substance: WARFARIN SODIUM
     Dosage: 5 MG, QD
     Route: 048
     Dates: start: 20161227
  9. PRILOSEC [Concomitant]
     Active Substance: OMEPRAZOLE MAGNESIUM
     Dosage: 20 MG, QD
     Route: 048
     Dates: start: 20101227

REACTIONS (7)
  - Hypogammaglobulinaemia [Unknown]
  - Mental status changes [Fatal]
  - Ataxia [Unknown]
  - Tremor [Unknown]
  - Candida infection [Unknown]
  - Pancytopenia [Unknown]
  - Nocardiosis [Unknown]
